FAERS Safety Report 6062547-4 (Version None)
Quarter: 2009Q1

REPORT INFORMATION
  Report Type: 
  Country: None (occurrence: None)
  Receive Date: 20090202
  Receipt Date: 20090202
  Transmission Date: 20090719
  Serious: Yes (Disabling)
  Sender: FDA-Public Use
  Company Number: None

PATIENT
  Age: 37 Year
  Sex: Male
  Weight: 79.8331 kg

DRUGS (1)
  1. TOPAMAX [Suspect]
     Indication: POST-TRAUMATIC HEADACHE
     Dosage: 75MG DAILY
     Dates: start: 20061214, end: 20061222

REACTIONS (3)
  - BLINDNESS [None]
  - GLAUCOMA [None]
  - HEADACHE [None]
